FAERS Safety Report 9143597 (Version 1)
Quarter: 2013Q1

REPORT INFORMATION
  Report Type: Report from Study
  Country: AU (occurrence: AU)
  Receive Date: 20130306
  Receipt Date: 20130306
  Transmission Date: 20140127
  Serious: Yes (Other)
  Sender: FDA-Public Use
  Company Number: AU-ROCHE-1177159

PATIENT
  Sex: Female

DRUGS (4)
  1. ACTEMRA [Suspect]
     Indication: RHEUMATOID ARTHRITIS
     Route: 042
     Dates: start: 20120609
  2. CRESTOR [Concomitant]
     Indication: BLOOD CHOLESTEROL
     Dosage: START DATE : 4 YEARS BACK
     Route: 048
  3. MICARDIS PLUS [Concomitant]
     Indication: HYPERTENSION
     Dosage: START DATE : 4 YEARS BACK
     Route: 048
  4. CARDIZEM [Concomitant]
     Dosage: START DATE : 4 YEARS BACK
     Route: 048

REACTIONS (2)
  - Pruritus [Not Recovered/Not Resolved]
  - Red blood cell sedimentation rate increased [Unknown]
